FAERS Safety Report 26188894 (Version 1)
Quarter: 2025Q4

REPORT INFORMATION
  Report Type: Spontaneous
  Country: JP (occurrence: JP)
  Receive Date: 20251223
  Receipt Date: 20251223
  Transmission Date: 20260117
  Serious: Yes (Other)
  Sender: JOHNSON AND JOHNSON
  Company Number: JP-JNJFOC-20251211969

PATIENT
  Age: 70 Year
  Sex: Male

DRUGS (6)
  1. LAZCLUZE [Suspect]
     Active Substance: LAZERTINIB
     Indication: EGFR gene mutation
     Route: 048
     Dates: start: 20251203
  2. RYBREVANT [Suspect]
     Active Substance: AMIVANTAMAB-VMJW
     Indication: EGFR gene mutation
     Route: 041
     Dates: start: 20251203, end: 20251203
  3. RYBREVANT [Suspect]
     Active Substance: AMIVANTAMAB-VMJW
     Dosage: DOSE UNKNOWN, DAY 8
     Route: 041
     Dates: start: 20251210, end: 20251210
  4. DEMECLOCYCLINE HYDROCHLORIDE [Suspect]
     Active Substance: DEMECLOCYCLINE HYDROCHLORIDE
     Indication: Product used for unknown indication
     Dosage: DOSE UNKNOWN
     Route: 048
     Dates: start: 20251203, end: 20251209
  5. DEMECLOCYCLINE HYDROCHLORIDE [Suspect]
     Active Substance: DEMECLOCYCLINE HYDROCHLORIDE
     Dosage: DOSE UNKNOWN
     Route: 048
  6. WARFARIN [Suspect]
     Active Substance: WARFARIN
     Indication: Peripheral vein thrombosis
     Dosage: DOSE UNKNOWN
     Route: 048

REACTIONS (3)
  - International normalised ratio increased [Recovered/Resolved]
  - Infusion related reaction [Recovered/Resolved]
  - Off label use [Unknown]

NARRATIVE: CASE EVENT DATE: 20251203
